FAERS Safety Report 17387096 (Version 1)
Quarter: 2020Q1

REPORT INFORMATION
  Report Type: Spontaneous
  Country: US (occurrence: US)
  Receive Date: 20200206
  Receipt Date: 20200206
  Transmission Date: 20200409
  Serious: Yes (Other)
  Sender: FDA-Public Use
  Company Number: US-PRINSTON PHARMACEUTICAL INC.-2020PRN00029

PATIENT
  Age: 79 Year
  Sex: Female
  Weight: 65.76 kg

DRUGS (7)
  1. RISPERIDONE. [Suspect]
     Active Substance: RISPERIDONE
     Dosage: 0.5 MG, 2X/DAY
     Route: 048
  2. RISPERIDONE. [Suspect]
     Active Substance: RISPERIDONE
     Dosage: 0.5 MG, 3X/DAY (WOULD TAKE 3 OR 4)
     Route: 048
  3. ZETIA [Concomitant]
     Active Substance: EZETIMIBE
  4. RISPERIDONE. [Suspect]
     Active Substance: RISPERIDONE
     Dosage: 0.5 MG, 4X/DAY (WOULD TAKE 3 OR 4)
     Route: 048
  5. RISPERIDONE. [Suspect]
     Active Substance: RISPERIDONE
     Dosage: 0.5 MG, 2X/DAY
     Route: 048
     Dates: end: 2019
  6. UNSPECIFIED MEDICATION FOR CHOLESTEROL [Concomitant]
  7. UNSPECIFIED MEDICATION FOR HIGH BLOOD PRESSURE [Concomitant]

REACTIONS (4)
  - Urinary incontinence [Recovered/Resolved]
  - Kidney infection [Recovered/Resolved]
  - Micturition urgency [Recovered/Resolved]
  - Product dose omission [Not Recovered/Not Resolved]

NARRATIVE: CASE EVENT DATE: 2019
